FAERS Safety Report 7925114-0 (Version None)
Quarter: 2011Q4

REPORT INFORMATION
  Report Type: 
  Country: None (occurrence: None)
  Receive Date: 20111118
  Receipt Date: 20110401
  Transmission Date: 20120403
  Serious: No
  Sender: FDA-Public Use
  Company Number: US-AMGEN-USASP2011017656

PATIENT
  Sex: Female

DRUGS (1)
  1. ENBREL [Suspect]
     Indication: RHEUMATOID ARTHRITIS
     Dosage: UNK
     Dates: start: 20040101

REACTIONS (11)
  - DRY EYE [None]
  - VOMITING [None]
  - DYSURIA [None]
  - SOMNOLENCE [None]
  - PAIN IN EXTREMITY [None]
  - BLADDER DISORDER [None]
  - ARTHRALGIA [None]
  - EYE PRURITUS [None]
  - SKIN MASS [None]
  - RASH GENERALISED [None]
  - DISTURBANCE IN ATTENTION [None]
